FAERS Safety Report 5975005-X (Version None)
Quarter: 2008Q4

REPORT INFORMATION
  Report Type: 
  Country: None (occurrence: None)
  Receive Date: 20081202
  Receipt Date: 20081128
  Transmission Date: 20090506
  Serious: Yes (Other)
  Sender: FDA-Public Use
  Company Number: BR-JNJFOC-20081200128

PATIENT

DRUGS (2)
  1. SPORANOX [Suspect]
     Indication: DRUG USE FOR UNKNOWN INDICATION
  2. SILDENAFIL CITRATE [Concomitant]

REACTIONS (1)
  - CONJUNCTIVAL HAEMORRHAGE [None]
